FAERS Safety Report 8421501-5 (Version None)
Quarter: 2012Q2

REPORT INFORMATION
  Report Type: 
  Country: None (occurrence: None)
  Receive Date: 20120608
  Receipt Date: 20120604
  Transmission Date: 20120825
  Serious: Yes (Hospitalization)
  Sender: FDA-Public Use
  Company Number: PHEH2012US010716

PATIENT
  Sex: Female

DRUGS (1)
  1. GLEEVEC [Suspect]
     Indication: CHRONIC MYELOID LEUKAEMIA
     Dosage: 300 MG QD
     Route: 048

REACTIONS (5)
  - CONVULSION [None]
  - FEELING ABNORMAL [None]
  - BLOOD PRESSURE INCREASED [None]
  - STRESS [None]
  - CEREBROVASCULAR ACCIDENT [None]
